FAERS Safety Report 10208948 (Version 1)
Quarter: 2014Q2

REPORT INFORMATION
  Report Type: Spontaneous
  Country: PL (occurrence: PL)
  Receive Date: 20140530
  Receipt Date: 20140530
  Transmission Date: 20141212
  Serious: Yes (Other)
  Sender: FDA-Public Use
  Company Number: PL-PFIZER INC-2014145590

PATIENT
  Age: 16 Year
  Sex: Female

DRUGS (8)
  1. CYTARABINE [Suspect]
     Indication: ACUTE LEUKAEMIA
  2. DOXORUBICIN HCL [Suspect]
  3. DEXAMETHASONE [Suspect]
     Indication: ACUTE LEUKAEMIA
  4. VINCRISTINE SULFATE [Suspect]
     Indication: ACUTE LEUKAEMIA
  5. L-ASPARAGINASE [Suspect]
     Indication: ACUTE LEUKAEMIA
  6. CYCLOPHOSPHAMIDE [Suspect]
     Indication: ACUTE LEUKAEMIA
  7. THIOGUANINE [Suspect]
  8. METHOTREXATE SODIUM [Suspect]

REACTIONS (1)
  - Pseudomembranous colitis [Unknown]
